FAERS Safety Report 12967668 (Version 1)
Quarter: 2016Q4

REPORT INFORMATION
  Report Type: Spontaneous
  Country: US (occurrence: US)
  Receive Date: 20161123
  Receipt Date: 20161123
  Transmission Date: 20170207
  Serious: No
  Sender: FDA-Public Use
  Company Number: US-TEVA-657101USA

PATIENT
  Sex: Female
  Weight: 56.75 kg

DRUGS (3)
  1. CALCIUM [Concomitant]
     Active Substance: CALCIUM
     Dosage: 2 TABLETS BY MOUTH A DAY
     Route: 046
  2. OXYBUTYNIN [Suspect]
     Active Substance: OXYBUTYNIN
     Indication: HYPERTONIC BLADDER
     Route: 065
  3. MULTIVITAMIN FOR WOMEN [Concomitant]
     Dosage: 1 PILL CUT IN HALF, HALF IN MORNING AND HALF IN EVENING
     Route: 065

REACTIONS (4)
  - Drug ineffective [Unknown]
  - Urinary tract infection [Unknown]
  - Dry mouth [Recovered/Resolved]
  - Constipation [Recovered/Resolved]
